FAERS Safety Report 12808036 (Version 2)
Quarter: 2016Q4

REPORT INFORMATION
  Report Type: Spontaneous
  Country: GB (occurrence: GB)
  Receive Date: 20161004
  Receipt Date: 20161102
  Transmission Date: 20170207
  Serious: Yes (Hospitalization, Other)
  Sender: FDA-Public Use
  Company Number: GB-AMGEN-GBRSP2016133084

PATIENT
  Sex: Male
  Weight: 70 kg

DRUGS (17)
  1. OBINUTUZUMAB [Suspect]
     Active Substance: OBINUTUZUMAB
     Indication: CHRONIC LYMPHOCYTIC LEUKAEMIA
     Dosage: UNK
     Route: 042
     Dates: start: 20160405, end: 20160913
  2. DIAMORPHINE [Concomitant]
     Active Substance: DIACETYLMORPHINE
     Indication: PAIN
     Dosage: 15 MG, UNK
     Route: 058
     Dates: start: 20160322
  3. ALLOPURINOL. [Concomitant]
     Active Substance: ALLOPURINOL
     Indication: TUMOUR LYSIS SYNDROME
     Dosage: 300 MG, UNK
     Route: 048
     Dates: start: 20120813
  4. ALLOPURINOL. [Concomitant]
     Active Substance: ALLOPURINOL
     Dosage: 300 MG, 1 IN 1 D
     Route: 048
     Dates: start: 20160323
  5. DOCUSATE SODIUM. [Concomitant]
     Active Substance: DOCUSATE SODIUM
     Indication: CONSTIPATION
     Dosage: 200 MG, QD (1 IN 1 D)
     Route: 048
     Dates: start: 20160302
  6. ACICLOVIR [Concomitant]
     Active Substance: ACYCLOVIR
     Indication: INFECTION PROPHYLAXIS
     Dosage: 400 MG, QD (1 IN 1D)
     Route: 048
     Dates: start: 20120928
  7. NYSTAN [Concomitant]
     Active Substance: NYSTATIN
     Dosage: 1 ML, QID (4 IN 1 D)
     Route: 048
     Dates: start: 20160516
  8. KETAMINE [Concomitant]
     Active Substance: KETAMINE
     Indication: PAIN
     Dosage: 80 MG, UNK
     Route: 058
     Dates: start: 20160323
  9. AMBISOME [Concomitant]
     Active Substance: AMPHOTERICIN B
     Dosage: 150 MG, QD (1 IN 1 D)
     Route: 042
     Dates: start: 20160808, end: 20160815
  10. FILGRASTIM [Suspect]
     Active Substance: FILGRASTIM
     Indication: NEUTROPHIL COUNT DECREASED
     Dosage: 30 MILLION IU, QWK (1 IN 1 WK, FREQUENCY INITIALLY ONCE OFF, THEN WEEKLY AND THEN DAILY)
     Route: 058
     Dates: start: 20160513, end: 20160805
  11. LEVOMEPROMAZINE [Concomitant]
     Active Substance: LEVOMEPROMAZINE
     Indication: NAUSEA
     Dosage: 10 MG, UNK
     Route: 058
     Dates: start: 20160322
  12. ACICLOVIR [Concomitant]
     Active Substance: ACYCLOVIR
     Dosage: 400 MG, BID (2 IN 1 D)
     Route: 048
     Dates: start: 20160404
  13. IBRUTINIB [Suspect]
     Active Substance: IBRUTINIB
     Indication: CHRONIC LYMPHOCYTIC LEUKAEMIA
     Dosage: 420 MG, (THRICE A DAY OR ONCE A DAY)
     Route: 048
     Dates: start: 20160404
  14. COTRIMOXAZOLE [Concomitant]
     Active Substance: SULFAMETHOXAZOLE\TRIMETHOPRIM
     Indication: INFECTION PROPHYLAXIS
     Dosage: 480 MG, UNK
     Route: 048
     Dates: start: 20120928
  15. BIOTENE NOS [Concomitant]
     Active Substance: CETYLPYRIDINIUM CHLORIDE OR SODIUM FLUORIDE OR SODIUM MONOFLUOROPHOSPHATE OR GLUCOSE OXIDASE\LACTOFERRIN\LACTOPEROXIDASE BOVINE\LYSOZYME
     Dosage: 10 ML, BID (2 IN 1 D)
     Route: 048
     Dates: start: 20160601
  16. ATORVASTATIN [Concomitant]
     Active Substance: ATORVASTATIN
     Indication: HYPERCHOLESTEROLAEMIA
     Dosage: 40 MG, 1 IN 1 D
     Route: 048
     Dates: start: 20121107
  17. COTRIMOXAZOLE [Concomitant]
     Active Substance: SULFAMETHOXAZOLE\TRIMETHOPRIM
     Dosage: 480 MG, UNK
     Route: 048
     Dates: start: 20160404

REACTIONS (4)
  - Pyrexia [Recovered/Resolved]
  - Pyrexia [Not Recovered/Not Resolved]
  - Hodgkin^s disease [Recovered/Resolved]
  - Fatigue [Not Recovered/Not Resolved]

NARRATIVE: CASE EVENT DATE: 20160419
